FAERS Safety Report 8764951 (Version 2)
Quarter: 2012Q4

REPORT INFORMATION
  Report Type: Report from Study
  Country: DK (occurrence: DK)
  Receive Date: 20120903
  Receipt Date: 20120914
  Transmission Date: 20130627
  Serious: Yes (Hospitalization)
  Sender: FDA-Public Use
  Company Number: DK-BRISTOL-MYERS SQUIBB COMPANY-16847055

PATIENT
  Age: 53 Year
  Sex: Male

DRUGS (1)
  1. IPILIMUMAB [Suspect]
     Indication: METASTATIC MALIGNANT MELANOMA
     Dosage: Interrupted on 05Jul2012, 1DF: 3/10 mg/Kg
     Route: 042
     Dates: start: 20120705, end: 20120705

REACTIONS (3)
  - Hypopituitarism [Unknown]
  - Hypophysitis [Unknown]
  - Vomiting [Recovered/Resolved]
